FAERS Safety Report 6075879-0 (Version None)
Quarter: 2009Q1

REPORT INFORMATION
  Report Type: 
  Country: None (occurrence: None)
  Receive Date: 20090212
  Receipt Date: 20090206
  Transmission Date: 20090719
  Serious: Yes (Life-Threatening)
  Sender: FDA-Public Use
  Company Number: CH-WYE-G03070309

PATIENT
  Age: 36 Year
  Sex: Female

DRUGS (3)
  1. EFFEXOR [Suspect]
     Indication: DEPRESSION
     Route: 048
     Dates: start: 20040101
  2. EFFEXOR [Suspect]
     Indication: OBSESSIVE-COMPULSIVE DISORDER
     Dosage: DOSE STEPWISE REDUCED TO 37.5 MG DAILY
     Route: 048
     Dates: end: 20090101
  3. EFFEXOR [Suspect]
     Dosage: DOSE AND FREQUENCY UNKNWON
     Dates: start: 20090101

REACTIONS (2)
  - DRUG EXPOSURE DURING PREGNANCY [None]
  - ECLAMPSIA [None]
